FAERS Safety Report 18860139 (Version 2)
Quarter: 2021Q1

REPORT INFORMATION
  Report Type: Spontaneous
  Country: US (occurrence: US)
  Receive Date: 20210208
  Receipt Date: 20210311
  Transmission Date: 20210420
  Serious: No
  Sender: FDA-Public Use
  Company Number: US-TAKEDA-2021TUS004878

PATIENT
  Sex: Female
  Weight: 95.69 kg

DRUGS (29)
  1. MAGNESIUM [Concomitant]
     Active Substance: MAGNESIUM
  2. AZOPT [Concomitant]
     Active Substance: BRINZOLAMIDE
  3. MONTELUKAST [Concomitant]
     Active Substance: MONTELUKAST SODIUM
  4. CLARITIN [Concomitant]
     Active Substance: LORATADINE
  5. MILK THISTLE [SILYBUM MARIANUM] [Concomitant]
     Active Substance: DIETARY SUPPLEMENT\HERBALS\MILK THISTLE
  6. PROAIR HFA [Concomitant]
     Active Substance: ALBUTEROL SULFATE
  7. EDARBI [Concomitant]
     Active Substance: AZILSARTAN KAMEDOXOMIL
  8. EPINEPHRINE. [Concomitant]
     Active Substance: EPINEPHRINE
  9. FLUTICASONE. [Concomitant]
     Active Substance: FLUTICASONE
  10. ALPRAZOLAM. [Concomitant]
     Active Substance: ALPRAZOLAM
  11. SILVER [Concomitant]
     Active Substance: SILVER
  12. FUROSEMIDE. [Concomitant]
     Active Substance: FUROSEMIDE
  13. ALBUTEROL [SALBUTAMOL] [Concomitant]
     Active Substance: ALBUTEROL
  14. GABAPENTIN. [Concomitant]
     Active Substance: GABAPENTIN
  15. LIDOCAINE. [Concomitant]
     Active Substance: LIDOCAINE
  16. PANTOPRAZOLE [Concomitant]
     Active Substance: PANTOPRAZOLE
  17. LUMIGAN [Concomitant]
     Active Substance: BIMATOPROST
  18. FOLIC ACID. [Concomitant]
     Active Substance: FOLIC ACID
  19. NORMAL SALINE [Concomitant]
     Active Substance: SODIUM CHLORIDE
  20. RESTASIS [Concomitant]
     Active Substance: CYCLOSPORINE
  21. HYQVIA [Suspect]
     Active Substance: HUMAN IMMUNOGLOBULIN G\HYALURONIDASE RECOMBINANT HUMAN
     Indication: IMMUNODEFICIENCY COMMON VARIABLE
     Dosage: 30 GRAM, Q4WEEKS
     Route: 058
     Dates: start: 20210129
  22. ACETAMINOPHEN. [Concomitant]
     Active Substance: ACETAMINOPHEN
  23. CLONIDINE. [Concomitant]
     Active Substance: CLONIDINE
  24. SPIRIVA [Concomitant]
     Active Substance: TIOTROPIUM BROMIDE MONOHYDRATE
  25. ASPIRIN (E.C.) [Concomitant]
     Active Substance: ASPIRIN
  26. SPIRONOLACTONE. [Concomitant]
     Active Substance: SPIRONOLACTONE
  27. VITAMIN D3 [Concomitant]
     Active Substance: CHOLECALCIFEROL
  28. MUPIROCIN. [Concomitant]
     Active Substance: MUPIROCIN
  29. DIPHENHYDRAMINE. [Concomitant]
     Active Substance: DIPHENHYDRAMINE

REACTIONS (5)
  - Noninfective gingivitis [Unknown]
  - Dizziness [Unknown]
  - Oral pain [Unknown]
  - Chills [Unknown]
  - Cystitis [Unknown]
